FAERS Safety Report 11093330 (Version 1)
Quarter: 2015Q2

REPORT INFORMATION
  Report Type: Spontaneous
  Country: US (occurrence: None)
  Receive Date: 20150427
  Receipt Date: 20150427
  Transmission Date: 20150821
  Serious: Yes (Death, Hospitalization)
  Sender: FDA-Public Use
  Company Number: INS201501-000037

PATIENT
  Age: 61 Year
  Sex: Female

DRUGS (29)
  1. OXYCODONE [Concomitant]
     Active Substance: OXYCODONE
  2. SODIUM CHLORIDE. [Concomitant]
     Active Substance: SODIUM CHLORIDE
  3. SPIRIVA (TIOPROPIUM) [Concomitant]
  4. SUBSYS [Suspect]
     Active Substance: FENTANYL
     Indication: BREAKTHROUGH PAIN
     Dosage: (400 MCG,120 UNITS)
     Dates: start: 20141013
  5. HEMOCYTE (FERROUS FUMARATE) [Concomitant]
  6. GEODON (ZIPRASIDONE) [Concomitant]
  7. CELEBREX [Concomitant]
     Active Substance: CELECOXIB
  8. DALIRESP [Concomitant]
     Active Substance: ROFLUMILAST
  9. PROVIGIL [Concomitant]
     Active Substance: MODAFINIL
  10. LAMOTRIGINE. [Concomitant]
     Active Substance: LAMOTRIGINE
  11. ATIVAN [Concomitant]
     Active Substance: LORAZEPAM
  12. XANAX [Concomitant]
     Active Substance: ALPRAZOLAM
  13. AMBIEN (ZOLPIDEM) [Concomitant]
  14. ROXANOL [Concomitant]
     Active Substance: MORPHINE SULFATE
  15. CYMBALTA [Concomitant]
     Active Substance: DULOXETINE HYDROCHLORIDE
  16. BROVANA (ARFORMOTEROL TARTRATE) [Concomitant]
  17. PRAVASTATIN [Concomitant]
     Active Substance: PRAVASTATIN\PRAVASTATIN SODIUM
  18. OXYGEN. [Concomitant]
     Active Substance: OXYGEN
  19. SINGULAIR [Concomitant]
     Active Substance: MONTELUKAST SODIUM
  20. VITAMIN D (CHOLECALCIFEROL) [Concomitant]
  21. LOPID [Concomitant]
     Active Substance: GEMFIBROZIL
  22. ADAVIR DISKU AER (FLUTICASONE PROPIONATE, SALMETEROL) [Concomitant]
  23. AZOR (AMLODIPINE, OLMESARTAN, MEDOXOMIL) [Concomitant]
  24. PREDNISONE. [Concomitant]
     Active Substance: PREDNISONE
  25. TYLENOL [Concomitant]
     Active Substance: ACETAMINOPHEN
  26. DURAGESIC (FENTANYL) [Concomitant]
  27. ZOFRAN [Concomitant]
     Active Substance: ONDANSETRON HYDROCHLORIDE
  28. SOMA [Concomitant]
     Active Substance: CARISOPRODOL
  29. COMPAZINE [Concomitant]
     Active Substance: PROCHLORPERAZINE MALEATE

REACTIONS (2)
  - Chronic obstructive pulmonary disease [None]
  - Off label use [None]

NARRATIVE: CASE EVENT DATE: 20150118
